FAERS Safety Report 18811239 (Version 2)
Quarter: 2021Q1

REPORT INFORMATION
  Report Type: Spontaneous
  Country: US (occurrence: US)
  Receive Date: 20210129
  Receipt Date: 20210215
  Transmission Date: 20210419
  Serious: No
  Sender: FDA-Public Use
  Company Number: US-009507513-2101USA010250

PATIENT
  Age: 17 Year
  Sex: Female
  Weight: 66.67 kg

DRUGS (1)
  1. NEXPLANON [Suspect]
     Active Substance: ETONOGESTREL
     Dosage: 1 ROD EVERY 3 YEARS, LEFT ARM 10 CM FROM MEDIAL EPICONDYLE
     Route: 059
     Dates: start: 20191030

REACTIONS (4)
  - Menstrual disorder [Unknown]
  - Complication associated with device [Not Recovered/Not Resolved]
  - Implant site pain [Unknown]
  - Complication of device removal [Not Recovered/Not Resolved]

NARRATIVE: CASE EVENT DATE: 20210121
